FAERS Safety Report 26198889 (Version 1)
Quarter: 2025Q4

REPORT INFORMATION
  Report Type: Spontaneous
  Country: US (occurrence: US)
  Receive Date: 20251225
  Receipt Date: 20251225
  Transmission Date: 20260118
  Serious: Yes (Life-Threatening, Hospitalization)
  Sender: ACCORD
  Company Number: US-MLMSERVICE-20251204-PI739152-00050-1

PATIENT
  Age: 80 Year
  Sex: Male

DRUGS (1)
  1. AMLODIPINE [Suspect]
     Active Substance: AMLODIPINE BESYLATE
     Dosage: STRENGTH: 10 MG
     Route: 048

REACTIONS (13)
  - Hypotension [Unknown]
  - Bradycardia [Unknown]
  - Haemodynamic instability [Unknown]
  - Atrioventricular block complete [Unknown]
  - Respiratory distress [Unknown]
  - Pulmonary oedema [Unknown]
  - Acute kidney injury [Unknown]
  - Retroperitoneal haematoma [Unknown]
  - Pulmonary embolism [Unknown]
  - Sepsis [Unknown]
  - Intentional overdose [Unknown]
  - Suicide attempt [Unknown]
  - Multiple organ dysfunction syndrome [Unknown]
